FAERS Safety Report 16462308 (Version 3)
Quarter: 2019Q3

REPORT INFORMATION
  Report Type: Spontaneous
  Country: ES (occurrence: ES)
  Receive Date: 20190621
  Receipt Date: 20190703
  Transmission Date: 20191004
  Serious: Yes (Hospitalization)
  Sender: FDA-Public Use
  Company Number: ES-AUROBINDO-AUR-APL-2019-036494

PATIENT

DRUGS (2)
  1. LINEZOLID. [Suspect]
     Active Substance: LINEZOLID
     Indication: CORYNEBACTERIUM INFECTION
  2. LINEZOLID. [Suspect]
     Active Substance: LINEZOLID
     Indication: ARTHRITIS BACTERIAL
     Dosage: 600 MILLIGRAM FOR 12 HOURS, 1200 MG, DAILY
     Route: 042

REACTIONS (3)
  - Gastrointestinal toxicity [Unknown]
  - Arthritis [Not Recovered/Not Resolved]
  - Drug ineffective [Unknown]
